FAERS Safety Report 7815319-1 (Version None)
Quarter: 2011Q4

REPORT INFORMATION
  Report Type: 
  Country: None (occurrence: None)
  Receive Date: 20111014
  Receipt Date: 20111012
  Transmission Date: 20120403
  Serious: Yes (Other)
  Sender: FDA-Public Use
  Company Number: US-PFIZER INC-2011244234

PATIENT
  Sex: Male
  Weight: 72.562 kg

DRUGS (4)
  1. DILANTIN [Suspect]
     Dosage: UNK
     Route: 048
  2. DILANTIN [Suspect]
     Indication: CONVULSION
     Dosage: 100 MG, 3X/DAY
     Route: 048
     Dates: start: 19960101
  3. HYZAAR [Concomitant]
     Indication: HYPERTENSION
     Dosage: UNK
  4. DILANTIN [Suspect]
     Dosage: 200 MG IN THE MORNING AND 300 MG AT NIGHT
     Route: 048

REACTIONS (1)
  - BLOOD URINE PRESENT [None]
